FAERS Safety Report 4451204-3 (Version None)
Quarter: 2004Q3

REPORT INFORMATION
  Report Type: 
  Country: None (occurrence: None)
  Receive Date: 20040915
  Receipt Date: 20040915
  Transmission Date: 20050211
  Serious: Yes (Hospitalization)
  Sender: FDA-Public Use
  Company Number: None

PATIENT
  Age: 65 Year
  Sex: Female
  Weight: 80.2867 kg

DRUGS (4)
  1. SANDOSTATIN [Suspect]
     Indication: DIARRHOEA
     Dosage: 30 MG IM
     Route: 030
     Dates: start: 20040526
  2. SANDOSTATIN [Suspect]
     Indication: DIARRHOEA
     Dosage: 30 MG IM
     Route: 030
     Dates: start: 20040624
  3. FLUOROURACIL [Concomitant]
  4. IMODIUM [Concomitant]

REACTIONS (6)
  - CATHETER RELATED COMPLICATION [None]
  - HYPOAESTHESIA [None]
  - OEDEMA PERIPHERAL [None]
  - PHLEBOTHROMBOSIS [None]
  - SKIN DISCOLOURATION [None]
  - VENOUS OCCLUSION [None]
